FAERS Safety Report 26189332 (Version 1)
Quarter: 2025Q4

REPORT INFORMATION
  Report Type: Spontaneous
  Country: US (occurrence: US)
  Receive Date: 20251223
  Receipt Date: 20251223
  Transmission Date: 20260118
  Serious: No
  Sender: AUROBINDO
  Company Number: US-APLCMS-2025EM786115

PATIENT
  Age: 78 Year
  Sex: Female
  Weight: 82.993 kg

DRUGS (1)
  1. LENALIDOMIDE [Suspect]
     Active Substance: LENALIDOMIDE
     Indication: Product used for unknown indication
     Dosage: 15 MILLIGRAM, DAILY
     Route: 061

REACTIONS (1)
  - Diarrhoea [Not Recovered/Not Resolved]
